FAERS Safety Report 8191967-7 (Version None)
Quarter: 2012Q1

REPORT INFORMATION
  Report Type: 
  Country: None (occurrence: None)
  Receive Date: 20120307
  Receipt Date: 20120301
  Transmission Date: 20120608
  Serious: Yes (Other)
  Sender: FDA-Public Use
  Company Number: PHHY2012AU019292

PATIENT
  Sex: Female

DRUGS (5)
  1. PRAMIPEXOLE DIHYDROCHLORIDE [Concomitant]
  2. STALEVO 100 [Suspect]
     Dosage: 200 /150/37.5 MG TABLET, 6 TIMES DAILY
     Route: 048
  3. MOVIPREP [Concomitant]
  4. MOTILIUM [Concomitant]
  5. MIRTAZAPINE [Concomitant]

REACTIONS (2)
  - MEDICATION RESIDUE [None]
  - PARKINSON'S DISEASE [None]
